FAERS Safety Report 21100155 (Version 1)
Quarter: 2022Q3

REPORT INFORMATION
  Report Type: Spontaneous
  Country: US (occurrence: None)
  Receive Date: 20220719
  Receipt Date: 20220719
  Transmission Date: 20221026
  Serious: No
  Sender: FDA-Public Use
  Company Number: None

PATIENT
  Age: 62 Year
  Sex: Male
  Weight: 94.5 kg

DRUGS (10)
  1. REPATHA [Suspect]
     Active Substance: EVOLOCUMAB
     Indication: Blood cholesterol increased
     Dosage: FREQUENCY : EVERY OTHER WEEK;?
     Route: 030
  2. ELIQUIS [Concomitant]
     Active Substance: APIXABAN
  3. PLAVIX [Concomitant]
     Active Substance: CLOPIDOGREL BISULFATE
  4. LISINOPRIL [Concomitant]
     Active Substance: LISINOPRIL
  5. TOPROL XL [Concomitant]
     Active Substance: METOPROLOL SUCCINATE
  6. PROTONIX [Concomitant]
     Active Substance: PANTOPRAZOLE SODIUM
  7. COENZYME Q10 [Concomitant]
     Active Substance: DIETARY SUPPLEMENT\UBIDECARENONE
  8. VITAMINS [Concomitant]
     Active Substance: VITAMINS
  9. VITAMIN D [Concomitant]
     Active Substance: VITAMIN D NOS
  10. ZINC [Concomitant]
     Active Substance: ZINC

REACTIONS (8)
  - Myalgia [None]
  - Asthenia [None]
  - Muscle spasms [None]
  - Pain in extremity [None]
  - Pain in extremity [None]
  - Pelvic pain [None]
  - Pain in extremity [None]
  - Pain in extremity [None]

NARRATIVE: CASE EVENT DATE: 20220625
